FAERS Safety Report 9933953 (Version 1)
Quarter: 2014Q1

REPORT INFORMATION
  Report Type: Spontaneous
  Country: US (occurrence: US)
  Receive Date: 20140228
  Receipt Date: 20140228
  Transmission Date: 20141002
  Serious: No
  Sender: FDA-Public Use
  Company Number: US-ABBVIE-13P-163-1173381-00

PATIENT
  Age: 62 Year
  Sex: Male
  Weight: 81.72 kg

DRUGS (3)
  1. ANDROGEL [Suspect]
     Indication: BLOOD TESTOSTERONE DECREASED
     Route: 061
     Dates: start: 201305
  2. HYDROCHLOROTHIAZIDE [Concomitant]
     Indication: HYPERTENSION
  3. RAMAPRIL [Concomitant]
     Indication: HYPERTENSION

REACTIONS (1)
  - Testicular disorder [Not Recovered/Not Resolved]
